FAERS Safety Report 25993660 (Version 1)
Quarter: 2025Q4

REPORT INFORMATION
  Report Type: Report from Study
  Country: US (occurrence: US)
  Receive Date: 20251104
  Receipt Date: 20251104
  Transmission Date: 20260118
  Serious: Yes (Other)
  Sender: ALEXION PHARMACEUTICALS
  Company Number: US-AstraZeneca-CH-00982722A

PATIENT
  Sex: Male
  Weight: 54.7 kg

DRUGS (3)
  1. SELUMETINIB [Suspect]
     Active Substance: SELUMETINIB
     Indication: Neurofibromatosis
     Dosage: 35 MILLIGRAM, BID
  2. ATROPINE [Concomitant]
     Active Substance: ATROPINE
     Dosage: UNK
     Route: 065
  3. HERBALS [Concomitant]
     Active Substance: HERBALS
     Dosage: UNK
     Route: 065

REACTIONS (2)
  - Fibroma [Not Recovered/Not Resolved]
  - Acne [Recovering/Resolving]
